FAERS Safety Report 9733363 (Version 1)
Quarter: 2013Q4

REPORT INFORMATION
  Report Type: Spontaneous
  Country: US (occurrence: None)
  Receive Date: 20131204
  Receipt Date: 20131204
  Transmission Date: 20140711
  Serious: Yes (Hospitalization)
  Sender: FDA-Public Use
  Company Number: None

PATIENT
  Age: 68 Year
  Sex: Male
  Weight: 82 kg

DRUGS (1)
  1. PEMETREXED [Suspect]

REACTIONS (12)
  - Pyrexia [None]
  - Asthenia [None]
  - Lethargy [None]
  - Hypophagia [None]
  - Sepsis [None]
  - Hypotension [None]
  - Haemothorax [None]
  - Pleural effusion [None]
  - Pneumonia [None]
  - Neoplasm [None]
  - Lung consolidation [None]
  - Pseudomonas infection [None]
